FAERS Safety Report 9382726 (Version 1)
Quarter: 2013Q3

REPORT INFORMATION
  Report Type: Spontaneous
  Country: GR (occurrence: GR)
  Receive Date: 20130703
  Receipt Date: 20130703
  Transmission Date: 20140515
  Serious: Yes (Hospitalization)
  Sender: FDA-Public Use
  Company Number: GR-UCBSA-090859

PATIENT
  Age: 76 Year
  Sex: Female

DRUGS (5)
  1. NEUPRO [Suspect]
     Indication: PARKINSON^S DISEASE
     Dosage: DOSE UNSPECIFIED
     Route: 062
     Dates: start: 20130610
  2. STALEVO [Concomitant]
     Indication: PARKINSON^S DISEASE
     Dosage: DAILY DOSE - 75+18.75+200 MG
     Route: 048
  3. VENAXEN [Concomitant]
     Indication: AMNESIA
     Dosage: DAILY DOSE 10MG
     Route: 048
     Dates: start: 2005
  4. BELIFAX [Concomitant]
     Indication: PROPHYLAXIS AGAINST GASTROINTESTINAL ULCER
     Route: 048
     Dates: start: 2005
  5. UNIMAZOLE [Concomitant]
     Indication: THYROID DISORDER
     Dosage: STARTED 40 YEARS AGO
     Route: 048

REACTIONS (1)
  - Hip fracture [Unknown]
